FAERS Safety Report 8557306 (Version 4)
Quarter: 2013Q4

REPORT INFORMATION
  Report Type: Report from Study
  Country: JP (occurrence: JP)
  Receive Date: 20120511
  Receipt Date: 20131211
  Transmission Date: 20140711
  Serious: Yes (Hospitalization)
  Sender: FDA-Public Use
  Company Number: JP-PFIZER INC-2012077498

PATIENT
  Age: 78 Year
  Sex: Female
  Weight: 60 kg

DRUGS (6)
  1. TEMSIROLIMUS [Suspect]
     Indication: METASTATIC RENAL CELL CARCINOMA
     Dosage: 25 MG, WEEKLY
     Route: 042
     Dates: start: 20110822, end: 20110822
  2. AMLODIN [Concomitant]
     Dosage: 5 MG, 1X/DAY
     Route: 048
  3. ADALAT [Concomitant]
     Dosage: 20 MG, 1X/DAY
     Route: 048
  4. ALLOZYM [Concomitant]
     Dosage: 300 MG, 1X/DAY
     Route: 048
  5. ECARD HD [Concomitant]
     Dosage: UNK
     Route: 048
  6. TALION [Concomitant]
     Dosage: 20 MG, 1X/DAY
     Dates: start: 20110822, end: 20110822

REACTIONS (1)
  - Humerus fracture [Unknown]
